FAERS Safety Report 16466017 (Version 3)
Quarter: 2020Q1

REPORT INFORMATION
  Report Type: Other
  Country: US (occurrence: US)
  Receive Date: 20190621
  Receipt Date: 20200324
  Transmission Date: 20200409
  Serious: No
  Sender: FDA-Public Use
  Company Number: US-ACORDA-ACO_158400_2019

PATIENT
  Sex: Female

DRUGS (1)
  1. INBRIJA [Suspect]
     Active Substance: LEVODOPA
     Indication: PARKINSON^S DISEASE
     Dosage: 84 MILLIGRAM, PRN, UP TO 5 TIMES PER DAY
     Route: 048
     Dates: start: 20190412, end: 20190419

REACTIONS (5)
  - Product residue present [Unknown]
  - Incorrect dose administered by device [Unknown]
  - Device issue [Unknown]
  - Device difficult to use [Unknown]
  - Nausea [Unknown]
